FAERS Safety Report 5864143-8 (Version None)
Quarter: 2008Q3

REPORT INFORMATION
  Report Type: 
  Country: None (occurrence: None)
  Receive Date: 20080829
  Receipt Date: 20080814
  Transmission Date: 20090109
  Serious: Yes (Other)
  Sender: FDA-Public Use
  Company Number: FR-AMGEN-UK301589

PATIENT

DRUGS (1)
  1. ROMIPLOSTIM [Suspect]
     Indication: DRUG USE FOR UNKNOWN INDICATION
     Route: 058
     Dates: start: 20080519, end: 20080804

REACTIONS (1)
  - DRUG INEFFECTIVE [None]
